FAERS Safety Report 7139785 (Version 6)
Quarter: 2012Q4

REPORT INFORMATION
  Report Type: 
  Country: US (occurrence: US)
  Receive Date: 20091005
  Receipt Date: 20121213
  Transmission Date: 20130627
  Serious: Yes (Other)
  Sender: FDA-Public Use
  Company Number: US-BAYER-200933976NA

PATIENT
  Age: 66 Year
  Sex: Female
  Weight: 100 kg

DRUGS (47)
  1. MAGNEVIST [Suspect]
     Indication: NUCLEAR MAGNETIC RESONANCE IMAGING ABDOMINAL
     Dosage: 2.5ML/SEC
     Route: 042
     Dates: start: 20051228, end: 20051228
  2. MAGNEVIST [Suspect]
     Indication: NUCLEAR MAGNETIC RESONANCE IMAGING ABDOMINAL
  3. MAGNEVIST [Suspect]
     Indication: NUCLEAR MAGNETIC RESONANCE IMAGING ABDOMINAL
  4. PROCRIT [ERYTHROPOIETIN] [Concomitant]
  5. ARANESP [Concomitant]
  6. AMBIEN [Concomitant]
  7. FUROSEMIDE [FUROSEMIDE] [Concomitant]
     Dosage: 20 mg, two tablets daily
  8. GLIPIZIDE [Concomitant]
  9. CLONIDINE [Concomitant]
     Dosage: 0.2 mg, BID
  10. LISINOPRIL [Concomitant]
     Dosage: 20 mg, QD
  11. NORVASC [Concomitant]
     Dosage: 10 mg, HS
  12. MIRALAX [Concomitant]
  13. MULTIVITAMIN [Concomitant]
  14. APRESOLINE [Concomitant]
     Dosage: 50 mg, two tablets daily
  15. ASPIRIN [ACETYLSALICYLIC ACID] [Concomitant]
     Dosage: 81 mg, QD
  16. ISOSORBIDE MONONITRATE [Concomitant]
     Dosage: 60 mg, QD
  17. ATENOLOL [Concomitant]
     Dosage: 50 mg, BID
  18. FERROUS SULFATE [Concomitant]
     Dosage: 325 mg, TID
  19. ACTOS [Concomitant]
     Dosage: 30 mg, QD
  20. HYDRALAZINE [Concomitant]
     Dosage: 50 mg, BID
  21. ALLOPURINOL [Concomitant]
     Dosage: 300 mg, UNK
  22. INDOMETHACIN [Concomitant]
     Dosage: 75 mg, two daily
  23. COLCHICINE [Concomitant]
     Dosage: 0.6 mg, BID
  24. XANAX [Concomitant]
     Dosage: 0.5 mg, QID
  25. PLAVIX [Concomitant]
  26. SEVELAMER [Concomitant]
  27. SODIUM BICARBONATE [Concomitant]
     Dosage: 650 mg, TID
  28. AVANDIA [Concomitant]
     Dosage: 8 mg, QD
  29. COREG [Concomitant]
  30. CRESTOR [Concomitant]
  31. DOXAZOSIN [Concomitant]
  32. PLENDIL [Concomitant]
  33. IMDUR [Concomitant]
  34. INSULIN [Concomitant]
  35. LIPITOR [Concomitant]
  36. PROVIGIL [Concomitant]
  37. PROZAC [Concomitant]
  38. ECOTRIN [Concomitant]
  39. IRON [Concomitant]
  40. BABY ASPIRIN [Concomitant]
  41. CILOSTAZOL [Concomitant]
  42. PROCRIT [Concomitant]
  43. TOPOMAX [Concomitant]
  44. SOTALOL [Concomitant]
  45. NITROBID [GLYCERYL TRINITRATE] [Concomitant]
  46. LANTUS [Concomitant]
  47. MORPHINE [Concomitant]

REACTIONS (19)
  - Nephrogenic systemic fibrosis [Not Recovered/Not Resolved]
  - Dermatitis [Not Recovered/Not Resolved]
  - Pruritus [Not Recovered/Not Resolved]
  - Rash [Not Recovered/Not Resolved]
  - Hypoaesthesia [Not Recovered/Not Resolved]
  - Skin induration [Not Recovered/Not Resolved]
  - Skin plaque [Not Recovered/Not Resolved]
  - Skin hypertrophy [Not Recovered/Not Resolved]
  - Pain [Not Recovered/Not Resolved]
  - Peau d^orange [Not Recovered/Not Resolved]
  - Skin exfoliation [Not Recovered/Not Resolved]
  - Skin atrophy [Not Recovered/Not Resolved]
  - Alopecia [Not Recovered/Not Resolved]
  - Skin mass [Not Recovered/Not Resolved]
  - Skin disorder [Not Recovered/Not Resolved]
  - Rash macular [Not Recovered/Not Resolved]
  - Oedema peripheral [Not Recovered/Not Resolved]
  - Arthralgia [Not Recovered/Not Resolved]
  - Myalgia [Not Recovered/Not Resolved]
